FAERS Safety Report 8116362-8 (Version None)
Quarter: 2012Q1

REPORT INFORMATION
  Report Type: 
  Country: None (occurrence: None)
  Receive Date: 20120206
  Receipt Date: 20120130
  Transmission Date: 20120608
  Serious: Yes (Hospitalization)
  Sender: FDA-Public Use
  Company Number: GB-GLAXOSMITHKLINE-B0760549B

PATIENT
  Sex: Female

DRUGS (17)
  1. LEVOFLOXACIN [Concomitant]
     Dates: start: 20111024
  2. GRANISETRON [Concomitant]
     Dates: start: 20111020
  3. NEULASTA [Concomitant]
     Dates: start: 20111021
  4. HEALTH SUPPLEMENT [Concomitant]
     Dates: start: 20111120
  5. BENDROFLUAZIDE [Concomitant]
     Indication: HYPERTENSION
  6. LAPATINIB [Suspect]
     Indication: BREAST CANCER METASTATIC
     Dosage: 1000MG PER DAY
     Route: 048
     Dates: start: 20111020
  7. FLUCONAZOLE [Concomitant]
     Dates: start: 20111024
  8. BECLOMETHASONE DIPROPIONATE [Concomitant]
     Indication: ASTHMA
     Dates: start: 19880101
  9. LOPERAMIDE HCL [Concomitant]
     Dates: start: 20111021
  10. LANSOPRAZOLE [Concomitant]
     Dates: start: 20111025
  11. DOCETAXEL [Suspect]
     Indication: BREAST CANCER METASTATIC
     Dosage: 60MGM2 EVERY 3 WEEKS
     Route: 042
     Dates: start: 20111020
  12. ALBUTEROL SULFATE AUTOHALER [Concomitant]
     Indication: ASTHMA
     Dates: start: 19880101
  13. DEXAMETHASONE [Concomitant]
     Dates: start: 20111019
  14. DOMPERIDONE [Concomitant]
     Dates: start: 20111020
  15. ACETAMINOPHEN [Concomitant]
     Dates: start: 20111021
  16. SUDOCREM [Concomitant]
     Dates: start: 20111105
  17. SUDOCREM [Concomitant]
     Indication: RASH
     Dates: start: 20111105

REACTIONS (8)
  - VOMITING [None]
  - INGUINAL HERNIA STRANGULATED [None]
  - BLOOD POTASSIUM DECREASED [None]
  - ABDOMINAL PAIN [None]
  - PNEUMONIA [None]
  - RESPIRATORY FAILURE [None]
  - PULMONARY OEDEMA [None]
  - SMALL INTESTINAL OBSTRUCTION [None]
